FAERS Safety Report 8584092-4 (Version None)
Quarter: 2012Q3

REPORT INFORMATION
  Report Type: 
  Country: None (occurrence: None)
  Receive Date: 20120810
  Receipt Date: 20120726
  Transmission Date: 20120928
  Serious: Yes (Hospitalization)
  Sender: FDA-Public Use
  Company Number: US-009507513-1207USA011974

PATIENT

DRUGS (3)
  1. VICTRELIS [Suspect]
     Dosage: 800 MG, TID
     Route: 048
  2. PEGASYS [Suspect]
     Dosage: 180 MICROGRAM, UNK
     Route: 058
  3. REBETOL [Suspect]
     Dosage: 600 MG, BID
     Route: 048

REACTIONS (3)
  - VOMITING [None]
  - DEHYDRATION [None]
  - PYREXIA [None]
